FAERS Safety Report 10204595 (Version 1)
Quarter: 2014Q2

REPORT INFORMATION
  Report Type: Spontaneous
  Country: US (occurrence: None)
  Receive Date: 20140527
  Receipt Date: 20140527
  Transmission Date: 20141212
  Serious: Yes (Other)
  Sender: FDA-Public Use
  Company Number: None

PATIENT
  Age: 26 Year
  Sex: Female
  Weight: 131.09 kg

DRUGS (10)
  1. ESCITALOPRAM 20 MG [Suspect]
     Indication: ANXIETY
     Dosage: ONE DAILY, QD, ORAL
     Route: 048
     Dates: start: 20120916, end: 20130206
  2. ALPRAZOLAM [Concomitant]
  3. B COMPLEX + C [Concomitant]
  4. BENICAR [Concomitant]
  5. CLINDAMYCIN [Concomitant]
  6. IMPLANON [Concomitant]
  7. LORTAB [Concomitant]
  8. PROPRANOLOL [Concomitant]
  9. TOPIRAMATE [Concomitant]
  10. ZETONNA [Concomitant]

REACTIONS (4)
  - Tremor [None]
  - Palpitations [None]
  - Therapeutic response decreased [None]
  - Product substitution issue [None]
